FAERS Safety Report 13097034 (Version 1)
Quarter: 2017Q1

REPORT INFORMATION
  Report Type: Spontaneous
  Country: US (occurrence: US)
  Receive Date: 20170106
  Receipt Date: 20170106
  Transmission Date: 20170428
  Serious: Yes (Other)
  Sender: FDA-Public Use
  Company Number: None

PATIENT
  Sex: Female

DRUGS (1)
  1. BUPROPION HCL [Suspect]
     Active Substance: BUPROPION HYDROCHLORIDE
     Route: 048

REACTIONS (8)
  - Depression [None]
  - Disturbance in attention [None]
  - Dizziness [None]
  - Night blindness [None]
  - Vision blurred [None]
  - Nausea [None]
  - Anxiety [None]
  - Confusional state [None]

NARRATIVE: CASE EVENT DATE: 20161202
